FAERS Safety Report 13210668 (Version 2)
Quarter: 2017Q1

REPORT INFORMATION
  Report Type: Spontaneous
  Country: US (occurrence: US)
  Receive Date: 20170209
  Receipt Date: 20170210
  Transmission Date: 20170428
  Serious: Yes (Disabling, Other)
  Sender: FDA-Public Use
  Company Number: US-ABBVIE-08P-163-0456877-00

PATIENT
  Sex: Female

DRUGS (1)
  1. LUPRON DEPOT [Suspect]
     Active Substance: LEUPROLIDE ACETATE
     Indication: ENDOMETRIOSIS
     Route: 050
     Dates: start: 200509, end: 200602

REACTIONS (19)
  - Anxiety [Unknown]
  - Bladder disorder [Unknown]
  - Bone density decreased [Unknown]
  - Amnesia [Unknown]
  - Bone pain [Unknown]
  - Depression [Unknown]
  - Sleep disorder [Unknown]
  - Intervertebral disc protrusion [Unknown]
  - Pain [Unknown]
  - Affect lability [Unknown]
  - Fatigue [Unknown]
  - Acne [Unknown]
  - Injury [Unknown]
  - Jaw disorder [Unknown]
  - Arthralgia [Unknown]
  - Nervousness [Unknown]
  - Hot flush [Unknown]
  - Intervertebral disc degeneration [Unknown]
  - Blindness [Unknown]
